FAERS Safety Report 25181535 (Version 1)
Quarter: 2025Q2

REPORT INFORMATION
  Report Type: Spontaneous
  Country: CN (occurrence: CN)
  Receive Date: 20250410
  Receipt Date: 20250410
  Transmission Date: 20250716
  Serious: Yes (Hospitalization, Other)
  Sender: JOHNSON AND JOHNSON
  Company Number: CN-JNJFOC-20250349971

PATIENT
  Age: 52 Year
  Sex: Female

DRUGS (2)
  1. RISPERDAL [Suspect]
     Active Substance: RISPERIDONE
     Indication: Schizophrenia
     Route: 048
  2. VALPROATE SODIUM [Suspect]
     Active Substance: VALPROATE SODIUM
     Indication: Schizophrenia
     Route: 065

REACTIONS (3)
  - Schizophrenia [Unknown]
  - Electrocardiogram PR shortened [Unknown]
  - Haemoglobin decreased [Unknown]
